FAERS Safety Report 11483631 (Version 1)
Quarter: 2015Q3

REPORT INFORMATION
  Report Type: Spontaneous
  Country: US (occurrence: None)
  Receive Date: 20150903
  Receipt Date: 20150903
  Transmission Date: 20151125
  Serious: Yes (Hospitalization)
  Sender: FDA-Public Use
  Company Number: 1713747-2015-999287

PATIENT
  Sex: Male

DRUGS (3)
  1. LIBERTY CYCLER CASSETE [Concomitant]
  2. DELFLEX [Suspect]
     Active Substance: CALCIUM CHLORIDE\DEXTROSE MONOHYDRATE\MAGNESIUM CHLORIDE\SODIUM CHLORIDE\SODIUM LACTATE
     Indication: PERITONEAL DIALYSIS
     Dosage: INTRAPERITONEAL
  3. LIBERTY CYCLER [Concomitant]
     Active Substance: DEVICE

REACTIONS (1)
  - Hypotension [None]

NARRATIVE: CASE EVENT DATE: 201508
